FAERS Safety Report 6434850-7 (Version None)
Quarter: 2009Q4

REPORT INFORMATION
  Report Type: 
  Country: None (occurrence: None)
  Receive Date: 20091109
  Receipt Date: 20091109
  Transmission Date: 20100525
  Serious: Yes (Disabling, Other)
  Sender: FDA-Public Use
  Company Number: None

PATIENT
  Age: 43 Year
  Sex: Female
  Weight: 68.0396 kg

DRUGS (1)
  1. MIRENA [Suspect]

REACTIONS (5)
  - ABASIA [None]
  - CYSTITIS INTERSTITIAL [None]
  - IMPAIRED WORK ABILITY [None]
  - PELVIC INFECTION [None]
  - SEXUAL RELATIONSHIP CHANGE [None]
